FAERS Safety Report 5806866-2 (Version None)
Quarter: 2008Q3

REPORT INFORMATION
  Report Type: 
  Country: None (occurrence: None)
  Receive Date: 20080711
  Receipt Date: 20080702
  Transmission Date: 20090109
  Serious: Yes (Other)
  Sender: FDA-Public Use
  Company Number: GB-JNJFOC-20080701199

PATIENT
  Sex: Female
  Weight: 85 kg

DRUGS (6)
  1. REMICADE [Suspect]
     Indication: RHEUMATOID ARTHRITIS
     Route: 042
  2. SULHALAZINE [Concomitant]
  3. LEFLUNOMIDE [Concomitant]
  4. ACETAMINOPHEN W/ CODEINE [Concomitant]
  5. DICLOFENAC [Concomitant]
  6. HRT [Concomitant]

REACTIONS (1)
  - BREAST CANCER [None]
